FAERS Safety Report 9539973 (Version 1)
Quarter: 2013Q3

REPORT INFORMATION
  Report Type: Report from Study
  Country: US (occurrence: US)
  Receive Date: 20130920
  Receipt Date: 20130920
  Transmission Date: 20140515
  Serious: Yes (Other)
  Sender: FDA-Public Use
  Company Number: US-UCBSA-097967

PATIENT
  Sex: Male

DRUGS (2)
  1. CIMZIA [Suspect]
     Indication: CROHN^S DISEASE
     Dosage: UNKNOWN DOSE
  2. CINSER IFX [Concomitant]
     Dosage: 21.7 OR 10 MG/KG
     Dates: start: 201211

REACTIONS (1)
  - Clostridium difficile infection [Unknown]
